FAERS Safety Report 10207665 (Version 1)
Quarter: 2014Q2

REPORT INFORMATION
  Report Type: Spontaneous
  Country: US (occurrence: US)
  Receive Date: 20140530
  Receipt Date: 20140530
  Transmission Date: 20141212
  Serious: No
  Sender: FDA-Public Use
  Company Number: US-GLAXOSMITHKLINE-A1053926A

PATIENT
  Sex: 0

DRUGS (4)
  1. VENTOLIN [Suspect]
     Indication: CHRONIC OBSTRUCTIVE PULMONARY DISEASE
     Dosage: 2PUFF FOUR TIMES PER DAY
     Route: 055
  2. CAMPATH [Suspect]
     Dates: start: 201008
  3. BACLOFEN [Concomitant]
  4. SINEMET [Concomitant]

REACTIONS (3)
  - Parkinsonism [Unknown]
  - Neuropathy peripheral [Unknown]
  - Gait disturbance [Unknown]
